FAERS Safety Report 7941955-8 (Version None)
Quarter: 2011Q4

REPORT INFORMATION
  Report Type: 
  Country: None (occurrence: None)
  Receive Date: 20111128
  Receipt Date: 20111121
  Transmission Date: 20120403
  Serious: Yes (Other)
  Sender: FDA-Public Use
  Company Number: US-JNJFOC-20110907049

PATIENT
  Sex: Male

DRUGS (2)
  1. LEVAQUIN [Suspect]
     Indication: PROSTATITIS
     Route: 048
     Dates: start: 20100801
  2. CIPROFLOXACIN [Suspect]
     Indication: INFECTION
     Route: 065

REACTIONS (5)
  - TENDON RUPTURE [None]
  - MENISCUS LESION [None]
  - PLANTAR FASCIITIS [None]
  - TENDON DISORDER [None]
  - TENOSYNOVITIS [None]
